FAERS Safety Report 25028836 (Version 1)
Quarter: 2025Q1

REPORT INFORMATION
  Report Type: Spontaneous
  Country: FR (occurrence: FR)
  Receive Date: 20250302
  Receipt Date: 20250302
  Transmission Date: 20250408
  Serious: Yes (Other)
  Sender: ORGANON
  Company Number: FR-ORGANON-O2501FRA000440

PATIENT
  Age: 33 Year
  Sex: Female

DRUGS (5)
  1. NEXPLANON [Suspect]
     Active Substance: ETONOGESTREL
     Route: 059
     Dates: start: 20240723
  2. NEXPLANON [Concomitant]
     Active Substance: ETONOGESTREL
     Route: 059
  3. NEXPLANON [Concomitant]
     Active Substance: ETONOGESTREL
     Route: 059
  4. NEXPLANON [Concomitant]
     Active Substance: ETONOGESTREL
     Route: 059
  5. NEXPLANON [Concomitant]
     Active Substance: ETONOGESTREL
     Route: 059

REACTIONS (7)
  - Vaginal haemorrhage [Unknown]
  - Device dislocation [Not Recovered/Not Resolved]
  - Weight decreased [Not Recovered/Not Resolved]
  - Pain [Not Recovered/Not Resolved]
  - Dysmenorrhoea [Not Recovered/Not Resolved]
  - Abdominal pain upper [Not Recovered/Not Resolved]
  - Malaise [Unknown]

NARRATIVE: CASE EVENT DATE: 20241201
